FAERS Safety Report 9399259 (Version 2)
Quarter: 2014Q1

REPORT INFORMATION
  Report Type: Spontaneous
  Country: FR (occurrence: None)
  Receive Date: 20130709
  Receipt Date: 20140122
  Transmission Date: 20141002
  Serious: Yes (Hospitalization)
  Sender: FDA-Public Use
  Company Number: 1786391

PATIENT
  Age: 66 Year
  Sex: Male

DRUGS (11)
  1. PENTOSTATIN [Suspect]
     Indication: PRODUCT USED FOR UNKNOWN INDICATION
     Route: 042
     Dates: start: 20130515, end: 20130530
  2. AMIKACINE MYLAN [Suspect]
     Indication: PRODUCT USED FOR UNKNOWN INDICATION
     Route: 042
     Dates: start: 20130531, end: 20130604
  3. GENTAMICINE [Suspect]
     Indication: PRODUCT USED FOR UNKNOWN INDICATION
     Route: 042
     Dates: start: 20130605, end: 20130607
  4. METFORMINE [Concomitant]
  5. ZYLORIC [Concomitant]
  6. VANCOMYCINE [Concomitant]
  7. ZELITREX [Concomitant]
  8. BACTRIM [Concomitant]
  9. LEDERFOLINE [Concomitant]
  10. FLAGYL [Concomitant]
  11. FORTUM [Concomitant]

REACTIONS (6)
  - Renal failure acute [None]
  - Capillary leak syndrome [None]
  - Culture stool positive [None]
  - Candida infection [None]
  - Hypovolaemia [None]
  - Diarrhoea [None]
